FAERS Safety Report 5576461-1 (Version None)
Quarter: 2007Q4

REPORT INFORMATION
  Report Type: 
  Country: None (occurrence: None)
  Receive Date: 20071228
  Receipt Date: 20071218
  Transmission Date: 20080405
  Serious: Yes (Other)
  Sender: FDA-Public Use
  Company Number: US-SANOFI-SYNTHELABO-A03200706221

PATIENT
  Sex: Female
  Weight: 59 kg

DRUGS (9)
  1. ENTOCORT EC [Concomitant]
     Indication: DRUG USE FOR UNKNOWN INDICATION
     Dosage: UNK
     Route: 065
  2. PLAVIX [Suspect]
     Indication: STENT PLACEMENT
     Route: 048
     Dates: start: 20070829, end: 20071201
  3. SIMVASTATIN [Concomitant]
     Indication: DRUG USE FOR UNKNOWN INDICATION
     Dosage: UNK
     Route: 065
  4. SPIRONOLACTONE [Concomitant]
     Indication: BLOOD PRESSURE
     Route: 065
     Dates: start: 20060101
  5. PRILOSEC [Concomitant]
     Indication: STOMACH DISCOMFORT
     Route: 065
     Dates: start: 20070830
  6. TENORMIN [Concomitant]
     Indication: HEART RATE IRREGULAR
     Route: 065
     Dates: start: 19840101
  7. ATACAND [Concomitant]
     Indication: BLOOD PRESSURE
     Route: 065
     Dates: start: 19990101
  8. COUMADIN [Concomitant]
     Indication: ATRIAL FIBRILLATION
     Route: 065
     Dates: start: 19990101
  9. ASPIRIN [Concomitant]
     Indication: DRUG USE FOR UNKNOWN INDICATION
     Dosage: UNK
     Route: 065

REACTIONS (5)
  - DEHYDRATION [None]
  - DIARRHOEA [None]
  - EPISTAXIS [None]
  - INTERNATIONAL NORMALISED RATIO INCREASED [None]
  - MUSCLE SPASMS [None]
